FAERS Safety Report 13338537 (Version 1)
Quarter: 2017Q1

REPORT INFORMATION
  Report Type: Spontaneous
  Country: US (occurrence: US)
  Receive Date: 20170315
  Receipt Date: 20170315
  Transmission Date: 20170428
  Serious: No
  Sender: FDA-Public Use
  Company Number: US-LPDUSPRD-20161010

PATIENT
  Sex: Female

DRUGS (1)
  1. ESTRADIOL VALERATE INJECTION, USP (0870-05) [Suspect]
     Active Substance: ESTRADIOL VALERATE
     Dosage: 20 MG
     Route: 030
     Dates: start: 20160801, end: 20160801

REACTIONS (4)
  - Eye swelling [Recovered/Resolved]
  - Drug administered at inappropriate site [Recovered/Resolved]
  - Peripheral swelling [Recovered/Resolved]
  - Joint swelling [Recovered/Resolved]

NARRATIVE: CASE EVENT DATE: 20160801
